FAERS Safety Report 4431080-5 (Version None)
Quarter: 2004Q3

REPORT INFORMATION
  Report Type: 
  Country: None (occurrence: None)
  Receive Date: 20040820
  Receipt Date: 20040820
  Transmission Date: 20050211
  Serious: Yes (Hospitalization)
  Sender: FDA-Public Use
  Company Number: None

PATIENT
  Age: 57 Year
  Sex: Male

DRUGS (4)
  1. ETOPOSIDE [Suspect]
     Indication: SMALL CELL LUNG CANCER STAGE UNSPECIFIED
     Dosage: SEE IMAGE
     Route: 042
     Dates: start: 20040207, end: 20020209
  2. .. [Concomitant]
  3. CISPLATIN [Suspect]
     Indication: SMALL CELL LUNG CANCER STAGE UNSPECIFIED
     Dosage: 60 MG/M2 Q3 WKS
     Dates: start: 20020207
  4. RADIATION THERAPY [Concomitant]

REACTIONS (5)
  - EATING DISORDER [None]
  - NAUSEA [None]
  - OESOPHAGITIS [None]
  - PAIN [None]
  - VOMITING [None]
